FAERS Safety Report 23356313 (Version 1)
Quarter: 2024Q1

REPORT INFORMATION
  Report Type: Spontaneous
  Country: GB (occurrence: GB)
  Receive Date: 20240102
  Receipt Date: 20240102
  Transmission Date: 20240410
  Serious: Yes (Other)
  Sender: FDA-Public Use
  Company Number: None

PATIENT
  Age: 79 Year
  Weight: 78 kg

DRUGS (10)
  1. TRIMETHOPRIM [Suspect]
     Active Substance: TRIMETHOPRIM
     Indication: Product used for unknown indication
     Route: 065
  2. ESTRADIOL [Concomitant]
     Active Substance: ESTRADIOL
     Dates: start: 20230904
  3. CANDESARTAN [Concomitant]
     Active Substance: CANDESARTAN
     Dates: start: 20230904
  4. CIPROFLOXACIN [Concomitant]
     Active Substance: CIPROFLOXACIN
     Dates: start: 20231107, end: 20231117
  5. SEQIRUS UK QUADRIVALENT INFLUENZA VACCINE [Concomitant]
     Dates: start: 20231106, end: 20231106
  6. MEBEVERINE HYDROCHLORIDE [Concomitant]
     Active Substance: MEBEVERINE HYDROCHLORIDE
     Dosage: PREFERABLY 20 MINUTES ...
     Dates: start: 20230904
  7. INDAPAMIDE [Concomitant]
     Active Substance: INDAPAMIDE
     Dosage: MORNING
     Dates: start: 20230904
  8. BECLOMETHASONE\FORMOTEROL [Concomitant]
     Active Substance: BECLOMETHASONE\FORMOTEROL
     Dosage: INHALE
     Dates: start: 20230918, end: 20231018
  9. QVAR [Concomitant]
     Active Substance: BECLOMETHASONE DIPROPIONATE
     Dates: start: 20231214
  10. NITROFURANTOIN [Concomitant]
     Active Substance: NITROFURANTOIN
     Dates: start: 20231214

REACTIONS (1)
  - Lip swelling [Recovered/Resolved]
